FAERS Safety Report 17002609 (Version 2)
Quarter: 2019Q4

REPORT INFORMATION
  Report Type: Report from Study
  Country: None (occurrence: CH)
  Receive Date: 20191107
  Receipt Date: 20191127
  Transmission Date: 20200122
  Serious: Yes (Hospitalization)
  Sender: FDA-Public Use
  Company Number: CH-ABBVIE-19K-151-2987643-00

PATIENT
  Sex: Male

DRUGS (3)
  1. DUODOPA [Suspect]
     Active Substance: CARBIDOPA\LEVODOPA
     Indication: PARKINSON^S DISEASE
     Dosage: STRENGTH:- 20 MG/ML 5 MG/ML
     Route: 050
     Dates: start: 20170228, end: 20181229
  2. DUODOPA [Suspect]
     Active Substance: CARBIDOPA\LEVODOPA
     Dosage: MD: 3.5 ML, CD: 3.8, CONTINUOUS RATE NIGHT: 3 ML/H, ED: 0 ML?24 TH THERAPY
     Route: 050
     Dates: start: 20191005
  3. DUODOPA [Suspect]
     Active Substance: CARBIDOPA\LEVODOPA
     Dosage: MD: 3.5 ML, CD: 4.4, CONTINUOUS RATE NIGHT: 3 ML/H, ED: 1 ML?24 TH THERAPY
     Route: 050
     Dates: start: 20181229, end: 20191005

REACTIONS (7)
  - Delusion [Recovering/Resolving]
  - Hallucination [Recovering/Resolving]
  - Aggression [Recovering/Resolving]
  - Device issue [Recovered/Resolved]
  - Device programming error [Recovered/Resolved]
  - Intentional device misuse [Recovered/Resolved]
  - Anxiety [Unknown]

NARRATIVE: CASE EVENT DATE: 2019
